FAERS Safety Report 15679523 (Version 2)
Quarter: 2018Q4

REPORT INFORMATION
  Report Type: Spontaneous
  Country: DE (occurrence: DE)
  Receive Date: 20181203
  Receipt Date: 20181228
  Transmission Date: 20190205
  Serious: Yes (Other)
  Sender: FDA-Public Use
  Company Number: DE-ROCHE-2222344

PATIENT
  Sex: Male
  Weight: 78 kg

DRUGS (4)
  1. OCREVUS [Suspect]
     Active Substance: OCRELIZUMAB
     Indication: PRODUCT USED FOR UNKNOWN INDICATION
     Dosage: HE RECEIVED THE SECOND INFUSION OF OCRELIZUMAB ON 10/DEC/2018 WHICH WAS WELL TOLERATED BY HIM.
     Route: 042
     Dates: start: 20181126
  2. PREDNISOLON [Concomitant]
     Active Substance: PREDNISOLONE
     Indication: PREMEDICATION
     Route: 042
     Dates: start: 20181126, end: 20181126
  3. PARACETAMOL [Concomitant]
     Active Substance: ACETAMINOPHEN
     Indication: PREMEDICATION
     Route: 048
     Dates: start: 20181126, end: 20181126
  4. TAVEGIL [Concomitant]
     Active Substance: CLEMASTINE FUMARATE
     Indication: PREMEDICATION
     Route: 065
     Dates: start: 20181126, end: 20181126

REACTIONS (5)
  - Balance disorder [Recovered/Resolved]
  - Feeling hot [Recovered/Resolved]
  - Dysphagia [Recovered/Resolved]
  - Speech disorder [Recovered/Resolved]
  - Ataxia [Recovering/Resolving]

NARRATIVE: CASE EVENT DATE: 20181126
